FAERS Safety Report 19022339 (Version 1)
Quarter: 2021Q1

REPORT INFORMATION
  Report Type: Spontaneous
  Country: CA (occurrence: CA)
  Receive Date: 20210317
  Receipt Date: 20210317
  Transmission Date: 20210420
  Serious: Yes (Hospitalization)
  Sender: FDA-Public Use
  Company Number: CA-PFIZER INC-2021267559

PATIENT
  Age: 74 Year
  Sex: Male

DRUGS (2)
  1. AMITRIPTYLINE [Suspect]
     Active Substance: AMITRIPTYLINE
     Indication: DEPRESSION
     Dosage: 100 MG, 1X/DAY
     Route: 048
  2. SERTRALINE HCL [Suspect]
     Active Substance: SERTRALINE HYDROCHLORIDE
     Indication: DEPRESSION
     Dosage: 200 MG, 1X/DAY
     Route: 048

REACTIONS (2)
  - Rhabdomyolysis [Unknown]
  - Neuroleptic malignant syndrome [Unknown]
